FAERS Safety Report 7412980-0 (Version None)
Quarter: 2011Q2

REPORT INFORMATION
  Report Type: 
  Country: None (occurrence: None)
  Receive Date: 20110413
  Receipt Date: 20110407
  Transmission Date: 20111010
  Serious: Yes (Hospitalization)
  Sender: FDA-Public Use
  Company Number: FR-MERCK-1104FRA00037

PATIENT
  Age: 46 Year
  Sex: Female
  Weight: 65 kg

DRUGS (3)
  1. LOPINAVIR AND RITONAVIR [Concomitant]
     Indication: HIV INFECTION
     Route: 048
  2. ISENTRESS [Suspect]
     Indication: HIV INFECTION
     Route: 048
     Dates: start: 20110101, end: 20110308
  3. TENOFOVIR DISOPROXIL FUMARATE [Concomitant]
     Indication: HIV INFECTION
     Route: 048

REACTIONS (2)
  - DRUG RASH WITH EOSINOPHILIA AND SYSTEMIC SYMPTOMS [None]
  - RENAL FAILURE ACUTE [None]
